FAERS Safety Report 6928004-5 (Version None)
Quarter: 2010Q3

REPORT INFORMATION
  Report Type: 
  Country: None (occurrence: None)
  Receive Date: 20100817
  Receipt Date: 20100701
  Transmission Date: 20110219
  Serious: Yes (Other)
  Sender: FDA-Public Use
  Company Number: SA-ASTRAZENECA-2010SE38143

PATIENT
  Age: 10057 Day
  Sex: Female
  Weight: 52 kg

DRUGS (1)
  1. SYMBICORT [Suspect]
     Indication: ASTHMA
     Dosage: 160/4.5 UG
     Route: 055
     Dates: start: 20090428, end: 20090430

REACTIONS (3)
  - DYSPNOEA [None]
  - FATIGUE [None]
  - SOMNOLENCE [None]
